FAERS Safety Report 4655427-X (Version None)
Quarter: 2005Q2

REPORT INFORMATION
  Report Type: 
  Country: None (occurrence: None)
  Receive Date: 20050505
  Receipt Date: 20050503
  Transmission Date: 20051028
  Serious: Yes (Death)
  Sender: FDA-Public Use
  Company Number: 200510029BWH

PATIENT
  Age: 63 Year
  Sex: Female

DRUGS (6)
  1. MYCELEX [Suspect]
     Dosage: 50 MG, TOTAL DAILY, ORAL
     Route: 048
     Dates: start: 20040201
  2. ALBUTEROL [Concomitant]
  3. NORVASC [Concomitant]
  4. INSULIN [Concomitant]
  5. SINGULAIR [Concomitant]
  6. GLUCOTROL [Concomitant]

REACTIONS (1)
  - CHRONIC OBSTRUCTIVE PULMONARY DISEASE [None]
